FAERS Safety Report 5512625-0 (Version None)
Quarter: 2007Q4

REPORT INFORMATION
  Report Type: 
  Country: None (occurrence: None)
  Receive Date: 20071112
  Receipt Date: 20071107
  Transmission Date: 20080405
  Serious: Yes (Hospitalization, Congenital Anomaly)
  Sender: FDA-Public Use
  Company Number: GB-AVENTIS-200616063GDDC

PATIENT
  Sex: Male
  Weight: 2.62 kg

DRUGS (6)
  1. CLOMID [Suspect]
     Route: 064
     Dates: start: 20060408, end: 20060412
  2. NITROFURANTOIN [Concomitant]
     Route: 064
     Dates: start: 20060626, end: 20060629
  3. ERYTHROMYCIN [Concomitant]
     Route: 064
     Dates: start: 20060710, end: 20060717
  4. CLOTRIMAZOLE [Concomitant]
     Route: 064
     Dates: start: 20060710, end: 20060710
  5. HYDROCORTISONE CREAM 1.% [Concomitant]
     Dates: start: 20060721
  6. CEPHALEXIN [Concomitant]
     Route: 064
     Dates: start: 20060811, end: 20060818

REACTIONS (3)
  - CLEFT LIP AND PALATE [None]
  - DRUG EXPOSURE DURING PREGNANCY [None]
  - PREMATURE BABY [None]
